FAERS Safety Report 5899261-1 (Version None)
Quarter: 2008Q3

REPORT INFORMATION
  Report Type: 
  Country: None (occurrence: None)
  Receive Date: 20080828
  Receipt Date: 20071114
  Transmission Date: 20090109
  Serious: Yes (Hospitalization)
  Sender: FDA-Public Use
  Company Number: CIP07002012

PATIENT
  Age: 40 Year
  Sex: Female
  Weight: 136.1 kg

DRUGS (2)
  1. ASACOL [Suspect]
     Indication: CROHN'S DISEASE
     Dosage: 1600 MG, 3/DAY, ORAL
     Route: 048
  2. CANASA (MESALAZINE) [Concomitant]

REACTIONS (1)
  - PANCREATITIS [None]
